FAERS Safety Report 24103928 (Version 1)
Quarter: 2024Q3

REPORT INFORMATION
  Report Type: Spontaneous
  Country: JP (occurrence: JP)
  Receive Date: 20240717
  Receipt Date: 20240717
  Transmission Date: 20241017
  Serious: Yes (Hospitalization)
  Sender: STRIDES
  Company Number: None

PATIENT
  Age: 65 Year
  Sex: Female
  Weight: 58.3 kg

DRUGS (3)
  1. VANCOMYCIN [Suspect]
     Active Substance: VANCOMYCIN
     Indication: Meningitis bacterial
     Dosage: 1 GRAM, EVERY 12 HRS (OVER 1 H (1.0 G EVERY 12 H).)
     Route: 065
  2. MEROPENEM [Suspect]
     Active Substance: MEROPENEM
     Indication: Meningitis bacterial
     Dosage: 2 GRAM, EVERY 8 HOURS (OVER 1HR (2.0 G EVERY 8 H) OR (6.0 G/DAY))
     Route: 065
  3. OLMESARTAN [Concomitant]
     Active Substance: OLMESARTAN
     Indication: Product used for unknown indication
     Dosage: 20 MILLIGRAM, QD
     Route: 065

REACTIONS (2)
  - Drug level increased [Recovered/Resolved]
  - Acute kidney injury [Recovered/Resolved]
